FAERS Safety Report 17398764 (Version 5)
Quarter: 2020Q2

REPORT INFORMATION
  Report Type: Spontaneous
  Country: US (occurrence: US)
  Receive Date: 20200210
  Receipt Date: 20200616
  Transmission Date: 20200713
  Serious: No
  Sender: FDA-Public Use
  Company Number: US-PFIZER INC-2020055902

PATIENT
  Age: 59 Year
  Sex: Male

DRUGS (2)
  1. BAVENCIO [Suspect]
     Active Substance: AVELUMAB
     Indication: RENAL CANCER
     Dosage: 800 MG, EVERY 3 WEEKS  (800MG Q 3 WEEKS)
     Route: 042
     Dates: start: 20191122
  2. INLYTA [Suspect]
     Active Substance: AXITINIB
     Dosage: UNK
     Route: 042

REACTIONS (2)
  - Pallor [Unknown]
  - Chills [Recovered/Resolved]
